FAERS Safety Report 13437921 (Version 2)
Quarter: 2017Q2

REPORT INFORMATION
  Report Type: Report from Study
  Country: US (occurrence: US)
  Receive Date: 20170413
  Receipt Date: 20170610
  Transmission Date: 20170830
  Serious: Yes (Other)
  Sender: FDA-Public Use
  Company Number: US-BRISTOL-MYERS SQUIBB COMPANY-BMS-2017-029708

PATIENT
  Sex: Female

DRUGS (1)
  1. APIXABAN [Suspect]
     Active Substance: APIXABAN
     Indication: CEREBROVASCULAR ACCIDENT PROPHYLAXIS
     Dosage: 5 MG, BID
     Route: 048

REACTIONS (10)
  - Post procedural haemorrhage [Unknown]
  - Atrial fibrillation [Unknown]
  - Drug dose omission [Unknown]
  - Off label use [Unknown]
  - Contusion [Unknown]
  - Tooth extraction [Unknown]
  - Weight decreased [Unknown]
  - Wound haemorrhage [Unknown]
  - Cardiac ablation [Unknown]
  - Haemorrhage [Unknown]
